FAERS Safety Report 19903805 (Version 1)
Quarter: 2021Q4

REPORT INFORMATION
  Report Type: Report from Study
  Country: GB (occurrence: GB)
  Receive Date: 20211001
  Receipt Date: 20211001
  Transmission Date: 20220303
  Serious: Yes (Death)
  Sender: FDA-Public Use
  Company Number: GB-BOEHRINGERINGELHEIM-2021-BI-126380

PATIENT
  Age: 73 Year
  Sex: Male
  Weight: 65 kg

DRUGS (1)
  1. TENECTEPLASE [Suspect]
     Active Substance: TENECTEPLASE
     Indication: Ischaemic stroke
     Route: 042
     Dates: start: 20210904

REACTIONS (2)
  - Haemorrhagic transformation stroke [Fatal]
  - Pneumonia [Fatal]

NARRATIVE: CASE EVENT DATE: 20210905
